FAERS Safety Report 21791279 (Version 1)
Quarter: 2022Q4

REPORT INFORMATION
  Report Type: Spontaneous
  Country: US (occurrence: None)
  Receive Date: 20221227
  Receipt Date: 20221227
  Transmission Date: 20230113
  Serious: No
  Sender: FDA-Public Use
  Company Number: None

PATIENT
  Sex: Male
  Weight: 92.08 kg

DRUGS (6)
  1. HYDROXYUREA [Suspect]
     Active Substance: HYDROXYUREA
     Indication: Essential thrombocythaemia
     Dosage: FREQUENCY : DAILY;?
     Route: 048
     Dates: start: 20211020
  2. CALCIUM CARBONATE AND MAGNESIUM CARBONATE [Concomitant]
  3. DICLOFENAC [Concomitant]
     Active Substance: DICLOFENAC
  4. FAMOTIDINE [Concomitant]
     Active Substance: FAMOTIDINE
  5. KEPPRA [Concomitant]
     Active Substance: LEVETIRACETAM
  6. ZINC 15 [Concomitant]

REACTIONS (2)
  - Hip surgery [None]
  - Fatigue [None]
